FAERS Safety Report 8278167-7 (Version None)
Quarter: 2012Q2

REPORT INFORMATION
  Report Type: 
  Country: None (occurrence: None)
  Receive Date: 20120412
  Receipt Date: 20110909
  Transmission Date: 20120825
  Serious: No
  Sender: FDA-Public Use
  Company Number: US-ASTRAZENECA-2011SE54586

PATIENT
  Age: 74 Year
  Sex: Female

DRUGS (3)
  1. TOPROL-XL [Concomitant]
  2. NEXIUM [Suspect]
     Route: 048
  3. HEART MEDICATIONS [Concomitant]

REACTIONS (4)
  - ASTHENIA [None]
  - ADVERSE DRUG REACTION [None]
  - DIABETES MELLITUS [None]
  - HYPERTENSION [None]
